FAERS Safety Report 7701032-8 (Version None)
Quarter: 2011Q3

REPORT INFORMATION
  Report Type: 
  Country: None (occurrence: None)
  Receive Date: 20110822
  Receipt Date: 20110809
  Transmission Date: 20111222
  Serious: Yes (Hospitalization, Other)
  Sender: FDA-Public Use
  Company Number: US-BAYER-201040349NA

PATIENT
  Age: 46 Year
  Sex: Female
  Weight: 63.492 kg

DRUGS (17)
  1. NEURONTIN [Concomitant]
     Indication: BACK PAIN
  2. AMBIEN [Concomitant]
  3. BACLOFEN [Concomitant]
  4. MILK OF MAGNESIA TAB [Concomitant]
  5. YASMIN [Suspect]
     Indication: PRODUCT USED FOR UNKNOWN INDICATION
     Route: 048
     Dates: start: 20080101, end: 20080701
  6. VICODIN [Concomitant]
  7. IMITREX [Concomitant]
  8. CLONAZEPAM [Concomitant]
     Indication: SLEEP DISORDER
  9. SENOKOT [Concomitant]
  10. YAZ [Suspect]
     Indication: PRODUCT USED FOR UNKNOWN INDICATION
     Route: 048
     Dates: start: 20080101, end: 20080701
  11. GABAPENTIN [Concomitant]
     Indication: NEURALGIA
  12. TOPAMAX [Concomitant]
  13. LYRICA [Concomitant]
  14. OXYCODONE HCL [Concomitant]
     Indication: BACK PAIN
  15. SERTRALINE HYDROCHLORIDE [Concomitant]
     Indication: DEPRESSION
  16. MORPHINE [Concomitant]
     Dosage: 15 MG, UNK
  17. MINERAL OIL EMULSION [Concomitant]

REACTIONS (2)
  - PULMONARY EMBOLISM [None]
  - THROMBOSIS [None]
